FAERS Safety Report 9056889 (Version 1)
Quarter: 2013Q1

REPORT INFORMATION
  Report Type: Spontaneous
  Country: US (occurrence: US)
  Receive Date: 20130201
  Receipt Date: 20130201
  Transmission Date: 20140127
  Serious: No
  Sender: FDA-Public Use
  Company Number: US-GALDERMA-US-GDP-12414345

PATIENT
  Sex: Female
  Weight: 46 kg

DRUGS (2)
  1. EPIDUO [Suspect]
     Indication: ACNE
     Route: 061
     Dates: start: 201206
  2. IRON [Concomitant]
     Indication: ANAEMIA
     Route: 048

REACTIONS (2)
  - Dry skin [Unknown]
  - Application site dryness [None]
